FAERS Safety Report 5952575-9 (Version None)
Quarter: 2008Q4

REPORT INFORMATION
  Report Type: 
  Country: None (occurrence: None)
  Receive Date: 20081029
  Receipt Date: 20080902
  Transmission Date: 20090506
  Serious: Yes (Other)
  Sender: FDA-Public Use
  Company Number: 51977

PATIENT
  Age: 71 Year
  Sex: Female
  Weight: 113.3993 kg

DRUGS (1)
  1. METHOTREXATE [Suspect]
     Indication: RHEUMATOID ARTHRITIS
     Dosage: 0.3ML ORALLY ONCE WEEKLY
     Dates: start: 20070508, end: 20070908

REACTIONS (1)
  - DIARRHOEA [None]
